FAERS Safety Report 5988821-5 (Version None)
Quarter: 2008Q4

REPORT INFORMATION
  Report Type: 
  Country: None (occurrence: None)
  Receive Date: 20081210
  Receipt Date: 20081001
  Transmission Date: 20090506
  Serious: Yes (Other)
  Sender: FDA-Public Use
  Company Number: US-AMGEN-US310963

PATIENT
  Sex: Female

DRUGS (4)
  1. ENBREL [Suspect]
     Indication: DRUG USE FOR UNKNOWN INDICATION
     Route: 065
  2. ORENCIA [Concomitant]
     Route: 065
  3. METHOTREXATE [Concomitant]
     Route: 065
  4. REMICADE [Concomitant]
     Route: 065

REACTIONS (1)
  - NEOPLASM MALIGNANT [None]
